FAERS Safety Report 8406103-9 (Version None)
Quarter: 2012Q2

REPORT INFORMATION
  Report Type: 
  Country: None (occurrence: None)
  Receive Date: 20120529
  Receipt Date: 20080516
  Transmission Date: 20120825
  Serious: Yes (Life-Threatening, Hospitalization)
  Sender: FDA-Public Use
  Company Number: 000838

PATIENT
  Age: 62 Year
  Sex: Male

DRUGS (2)
  1. PLETAL [Suspect]
     Indication: CEREBRAL INFARCTION
     Dosage: 100 MG, BID, ORAL
     Route: 048
     Dates: start: 20080328, end: 20080416
  2. NORVASC [Suspect]

REACTIONS (9)
  - PLATELET COUNT DECREASED [None]
  - ANAEMIA [None]
  - DECREASED APPETITE [None]
  - GASTRODUODENAL ULCER [None]
  - OCCULT BLOOD POSITIVE [None]
  - INFECTION [None]
  - RENAL IMPAIRMENT [None]
  - MALNUTRITION [None]
  - GASTROINTESTINAL ULCER HAEMORRHAGE [None]
